FAERS Safety Report 4831705-6 (Version None)
Quarter: 2005Q4

REPORT INFORMATION
  Report Type: 
  Country: None (occurrence: None)
  Receive Date: 20051118
  Receipt Date: 20051109
  Transmission Date: 20060501
  Serious: Yes (Hospitalization, Disabling)
  Sender: FDA-Public Use
  Company Number: US-MERCK-0511USA01873

PATIENT
  Age: 58 Year
  Sex: Male

DRUGS (2)
  1. VIOXX [Suspect]
     Indication: ARTHRITIS
     Route: 048
     Dates: start: 20010801, end: 20040901
  2. VIOXX [Suspect]
     Indication: BACK PAIN
     Route: 048
     Dates: start: 20010801, end: 20040901

REACTIONS (1)
  - MYOCARDIAL INFARCTION [None]
